FAERS Safety Report 14246731 (Version 4)
Quarter: 2019Q3

REPORT INFORMATION
  Report Type: Spontaneous
  Country: US (occurrence: US)
  Receive Date: 20171204
  Receipt Date: 20190708
  Transmission Date: 20191004
  Serious: No
  Sender: FDA-Public Use
  Company Number: US-PFIZER INC-2017516790

PATIENT
  Sex: Male

DRUGS (3)
  1. GABAPENTIN. [Suspect]
     Active Substance: GABAPENTIN
     Dosage: UNK
  2. CYMBALTA [Suspect]
     Active Substance: DULOXETINE HYDROCHLORIDE
     Dosage: UNK
  3. BACLOFEN. [Suspect]
     Active Substance: BACLOFEN
     Dosage: UNK

REACTIONS (2)
  - Confusional state [Unknown]
  - Drug hypersensitivity [Unknown]
